FAERS Safety Report 12890993 (Version 2)
Quarter: 2016Q4

REPORT INFORMATION
  Report Type: Spontaneous
  Country: DE (occurrence: DE)
  Receive Date: 20161027
  Receipt Date: 20161210
  Transmission Date: 20170207
  Serious: Yes (Other)
  Sender: FDA-Public Use
  Company Number: DE-AMGEN-DEUSP2016149729

PATIENT
  Age: 72 Year
  Sex: Female

DRUGS (3)
  1. CLARELUX [Concomitant]
     Active Substance: CLOBETASOL PROPIONATE
     Indication: PRURITUS
     Dosage: UNK
     Dates: start: 20160910
  2. ENBREL [Suspect]
     Active Substance: ETANERCEPT
     Indication: PSORIASIS
     Dosage: 50 MG, UNK
     Route: 065
  3. DAIVOBET [Concomitant]
     Active Substance: BETAMETHASONE DIPROPIONATE\CALCIPOTRIENE
     Indication: SKIN DISORDER
     Dosage: UNK UNK, 1X/DAY
     Dates: start: 20151029

REACTIONS (4)
  - Diarrhoea [Recovered/Resolved]
  - Diarrhoea haemorrhagic [Recovered/Resolved]
  - Gastrointestinal pain [Recovered/Resolved]
  - Haemoglobin decreased [Unknown]

NARRATIVE: CASE EVENT DATE: 201605
